FAERS Safety Report 13259392 (Version 6)
Quarter: 2019Q3

REPORT INFORMATION
  Report Type: Spontaneous
  Country: US (occurrence: US)
  Receive Date: 20170222
  Receipt Date: 20190920
  Transmission Date: 20191004
  Serious: Yes (Hospitalization)
  Sender: FDA-Public Use
  Company Number: US-PFIZER INC-2017074774

PATIENT
  Age: 70 Year
  Sex: Female
  Weight: 75 kg

DRUGS (5)
  1. IBRANCE [Suspect]
     Active Substance: PALBOCICLIB
     Dosage: 125 MG CYCLIC(ONCE A DAY FOR 21 DAYS AND OFF FOR 7 DAYS)
     Dates: start: 20180316
  2. VICODIN [Concomitant]
     Active Substance: ACETAMINOPHEN\HYDROCODONE BITARTRATE
     Indication: PAIN
     Dosage: 10 MG, AS NEEDED
  3. MECLIZINE [Concomitant]
     Active Substance: MECLIZINE HYDROCHLORIDE
     Indication: DIZZINESS
     Dosage: 10 MG, AS NEEDED
     Dates: start: 2016
  4. IBRANCE [Suspect]
     Active Substance: PALBOCICLIB
     Indication: BREAST CANCER METASTATIC
     Dosage: 125 MG, CYCLIC, ONCE A DAY FOR 21 DAYS (3 WEEKS ON AND 1 WEEK OFF)
     Dates: start: 2016
  5. IBRANCE [Suspect]
     Active Substance: PALBOCICLIB
     Dosage: 125 MG, CYCLIC, (DAILY FOR 21 DAYS THEN 7 DAYS OFF)
     Route: 048
     Dates: start: 201612

REACTIONS (5)
  - White blood cell count decreased [Unknown]
  - Nasopharyngitis [Recovered/Resolved]
  - Oropharyngeal pain [Recovered/Resolved]
  - Hypertension [Unknown]
  - Neoplasm progression [Unknown]

NARRATIVE: CASE EVENT DATE: 201702
